FAERS Safety Report 9896680 (Version 1)
Quarter: 2014Q1

REPORT INFORMATION
  Report Type: Spontaneous
  Country: US (occurrence: US)
  Receive Date: 20140213
  Receipt Date: 20140213
  Transmission Date: 20141002
  Serious: No
  Sender: FDA-Public Use
  Company Number: US-BRISTOL-MYERS SQUIBB COMPANY-18891077

PATIENT
  Sex: Female
  Weight: 99.77 kg

DRUGS (1)
  1. ORENCIA [Suspect]
     Indication: RHEUMATOID ARTHRITIS
     Dosage: INFUSION ON 02-APR-2013 AND 16-APR-2013?RECENT INFUSION WAS ON 14-MAY-2013
     Route: 042
     Dates: start: 20130319

REACTIONS (2)
  - Pruritus [Not Recovered/Not Resolved]
  - Cough [Unknown]
